FAERS Safety Report 10179572 (Version 1)
Quarter: 2014Q2

REPORT INFORMATION
  Report Type: Spontaneous
  Country: US (occurrence: None)
  Receive Date: 20140425
  Receipt Date: 20140425
  Transmission Date: 20141212
  Serious: No
  Sender: FDA-Public Use
  Company Number: AP356-00526-SPO-US

PATIENT
  Age: 63 Year
  Sex: Female
  Weight: 61.2 kg

DRUGS (3)
  1. BELVIQ (LORCASERIN HYDROCHLORIDE) [Suspect]
     Route: 048
     Dates: start: 20140301
  2. NORVASC (AMLODIPINE BESILATE) [Concomitant]
  3. TIROSINT (LEVOTHYROXINE SODIUM) [Concomitant]

REACTIONS (2)
  - Weight increased [None]
  - Fatigue [None]
